FAERS Safety Report 17156591 (Version 1)
Quarter: 2019Q4

REPORT INFORMATION
  Report Type: Spontaneous
  Country: US (occurrence: US)
  Receive Date: 20191216
  Receipt Date: 20191216
  Transmission Date: 20200122
  Serious: Yes (Other)
  Sender: FDA-Public Use
  Company Number: US-TEVA-2019-US-1153160

PATIENT
  Age: 40 Year
  Sex: Male

DRUGS (2)
  1. FINASTERIDE. [Suspect]
     Active Substance: FINASTERIDE
     Indication: CHORIORETINOPATHY
     Route: 065
     Dates: start: 201605
  2. PREDNISONE. [Suspect]
     Active Substance: PREDNISONE
     Indication: DERMATITIS CONTACT
     Dosage: TAPERED OVER 11 DAYS
     Route: 065
     Dates: start: 201208

REACTIONS (3)
  - Chorioretinopathy [Recovering/Resolving]
  - Colour blindness [Unknown]
  - Off label use [Unknown]

NARRATIVE: CASE EVENT DATE: 201208
